FAERS Safety Report 7449539-5 (Version None)
Quarter: 2011Q2

REPORT INFORMATION
  Report Type: 
  Country: None (occurrence: None)
  Receive Date: 20110502
  Receipt Date: 20110421
  Transmission Date: 20111010
  Serious: Yes (Death, Other)
  Sender: FDA-Public Use
  Company Number: JP-BAYER-201010352BYL

PATIENT
  Age: 73 Year
  Sex: Female
  Weight: 48 kg

DRUGS (11)
  1. NEXAVAR [Suspect]
     Dosage: 400 MG, QD
     Route: 048
     Dates: start: 20100120, end: 20100302
  2. ALLEGRA [Concomitant]
     Dosage: 120 MG, QD
     Route: 048
     Dates: start: 20100117
  3. SHAKUYAKUKANZOUTOU [Concomitant]
     Dosage: 2.5 G, QD
     Route: 048
  4. OMEPRAL [Concomitant]
     Dosage: 20 MG, QD
     Route: 048
  5. CALONAL [Concomitant]
     Dosage: 400 MG, PRN
     Route: 048
  6. MEDICON [Concomitant]
     Dosage: 45 MG, QD
     Route: 048
     Dates: start: 20100109
  7. NEXAVAR [Suspect]
     Indication: HEPATIC NEOPLASM MALIGNANT
     Dosage: 400 MG, BID
     Route: 048
     Dates: start: 20100108, end: 20100110
  8. NEXAVAR [Suspect]
     Dosage: 800 MG, QD
     Route: 048
     Dates: start: 20100113, end: 20100119
  9. ONEALFA [Concomitant]
     Dosage: 0.5 ?G, QD
     Route: 048
  10. ALDACTONE [Concomitant]
     Dosage: 25 MG, QD
     Route: 048
  11. URSO 250 [Concomitant]
     Dosage: 300 MG, QD
     Route: 048

REACTIONS (9)
  - ASPARTATE AMINOTRANSFERASE INCREASED [None]
  - HYPERTENSION [None]
  - GENERAL PHYSICAL HEALTH DETERIORATION [None]
  - PALMAR-PLANTAR ERYTHRODYSAESTHESIA SYNDROME [None]
  - ENCEPHALOPATHY [None]
  - DIZZINESS [None]
  - ALANINE AMINOTRANSFERASE INCREASED [None]
  - DECREASED APPETITE [None]
  - HYPERBILIRUBINAEMIA [None]
